FAERS Safety Report 4522794-7 (Version None)
Quarter: 2004Q4

REPORT INFORMATION
  Report Type: 
  Country: None (occurrence: None)
  Receive Date: 20041207
  Receipt Date: 20040624
  Transmission Date: 20050328
  Serious: Yes (Hospitalization)
  Sender: FDA-Public Use
  Company Number: F01200401590

PATIENT
  Age: 72 Year
  Sex: Male

DRUGS (6)
  1. OXALIPLATIN - SOLUTION - 85 MG/M2 [Suspect]
     Indication: COLORECTAL CANCER METASTATIC
     Dosage: 85 MG/M2 Q2W INTRAVENOUS NOS
     Route: 042
     Dates: start: 20040524, end: 20040524
  2. FLUOROURACIL [Suspect]
     Dosage: 400 MG/M2 IV BOLUS THEN 600 MG/M2 AS CONTINUOUS INFUSION ON D1-D2, Q2W INTRAVENOUS NOS
     Route: 042
     Dates: start: 20040524, end: 20040525
  3. LEUCOVORIN CALCIUM [Suspect]
     Dosage: 200 MG/M2 Q2W INTRAVENOUS NOS
     Route: 042
     Dates: start: 20040524, end: 20040525
  4. BEVACIZUMAB - SOLUTION - 5 MG/KG [Suspect]
     Dosage: 5 MG/KG Q2W INTRAVENOUS NOS
     Route: 042
     Dates: start: 20040524, end: 20040524
  5. DISOTHIAZIDE (HYDROCHLOROTHIAZIDE) [Concomitant]
  6. ATENOLOL [Concomitant]

REACTIONS (8)
  - ABDOMINAL PAIN [None]
  - ABDOMINAL PAIN UPPER [None]
  - ANOREXIA [None]
  - FATIGUE [None]
  - NAUSEA [None]
  - NEUTROPENIA [None]
  - OESOPHAGITIS [None]
  - VOMITING [None]
